FAERS Safety Report 25488369 (Version 1)
Quarter: 2025Q2

REPORT INFORMATION
  Report Type: Spontaneous
  Country: TR (occurrence: TR)
  Receive Date: 20250627
  Receipt Date: 20250627
  Transmission Date: 20250716
  Serious: Yes (Other)
  Sender: GLAND PHARMA LTD
  Company Number: TR-GLANDPHARMA-TR-2025GLNLIT01558

PATIENT

DRUGS (1)
  1. METRONIDAZOLE [Suspect]
     Active Substance: METRONIDAZOLE
     Indication: Product used for unknown indication
     Route: 065

REACTIONS (1)
  - Cutaneous vasculitis [Unknown]
